FAERS Safety Report 18541053 (Version 3)
Quarter: 2020Q4

REPORT INFORMATION
  Report Type: Spontaneous
  Country: US (occurrence: US)
  Receive Date: 20201124
  Receipt Date: 20201204
  Transmission Date: 20210114
  Serious: No
  Sender: FDA-Public Use
  Company Number: US-PFIZER INC-2020458230

PATIENT
  Age: 43 Year
  Sex: Male
  Weight: 117.93 kg

DRUGS (1)
  1. CHANTIX [Suspect]
     Active Substance: VARENICLINE TARTRATE
     Dosage: UNK
     Dates: start: 202011

REACTIONS (3)
  - Anger [Unknown]
  - Irritability [Unknown]
  - Personality change [Unknown]
